FAERS Safety Report 6429553-9 (Version None)
Quarter: 2009Q4

REPORT INFORMATION
  Report Type: 
  Country: None (occurrence: None)
  Receive Date: 20091103
  Receipt Date: 20091021
  Transmission Date: 20100525
  Serious: Yes (Other)
  Sender: FDA-Public Use
  Company Number: OSCN-PR-091OL-0462

PATIENT

DRUGS (4)
  1. OMNISCAN [Suspect]
     Indication: DRUG USE FOR UNKNOWN INDICATION
     Dosage: 0.1 MMOL/KG, SINGLE DOSE, I.V.;  0.5 MMOL/KG, SINGLE DOSE, I.V.
     Route: 042
     Dates: start: 20020508, end: 20020508
  2. OMNISCAN [Suspect]
     Indication: DRUG USE FOR UNKNOWN INDICATION
     Dosage: 0.1 MMOL/KG, SINGLE DOSE, I.V.;  0.5 MMOL/KG, SINGLE DOSE, I.V.
     Route: 042
     Dates: start: 20030303, end: 20030303
  3. OMNISCAN [Suspect]
     Indication: DRUG USE FOR UNKNOWN INDICATION
     Dosage: 0.1 MMOL/KG, SINGLE DOSE, I.V.;  0.5 MMOL/KG, SINGLE DOSE, I.V.
     Route: 042
     Dates: start: 20031031, end: 20031031
  4. OMNISCAN [Suspect]
     Indication: DRUG USE FOR UNKNOWN INDICATION
     Dosage: 0.1 MMOL/KG, SINGLE DOSE, I.V.;  0.5 MMOL/KG, SINGLE DOSE, I.V.
     Route: 042
     Dates: start: 20031111, end: 20031111

REACTIONS (1)
  - NEPHROGENIC SYSTEMIC FIBROSIS [None]
